FAERS Safety Report 5671927-8 (Version None)
Quarter: 2008Q1

REPORT INFORMATION
  Report Type: 
  Country: None (occurrence: None)
  Receive Date: 20080319
  Receipt Date: 20080211
  Transmission Date: 20080703
  Serious: No
  Sender: FDA-Public Use
  Company Number: US-BAYER-200813941NA

PATIENT
  Sex: Female

DRUGS (7)
  1. MAGNEVIST [Suspect]
     Indication: DRUG USE FOR UNKNOWN INDICATION
     Dates: start: 20071221, end: 20071221
  2. METHADON HCL TAB [Concomitant]
  3. GLUCOPHAGE [Concomitant]
  4. NEURONTIN [Concomitant]
  5. SOMA [Concomitant]
  6. LIDOCAINE PATCHES [Concomitant]
  7. LORTAB [Concomitant]

REACTIONS (3)
  - ERYTHEMA [None]
  - NASAL CONGESTION [None]
  - PRURITUS [None]
